FAERS Safety Report 16880652 (Version 1)
Quarter: 2019Q4

REPORT INFORMATION
  Report Type: Spontaneous
  Country: US (occurrence: US)
  Receive Date: 20191003
  Receipt Date: 20191003
  Transmission Date: 20200122
  Serious: No
  Sender: FDA-Public Use
  Company Number: US-JNJFOC-20190924869

PATIENT
  Age: 48 Year
  Sex: Male
  Weight: 72.64 kg

DRUGS (2)
  1. INVEGA SUSTENNA [Suspect]
     Active Substance: PALIPERIDONE PALMITATE
     Indication: ANXIETY
     Route: 030
     Dates: start: 201906
  2. INVEGA SUSTENNA [Suspect]
     Active Substance: PALIPERIDONE PALMITATE
     Indication: DEPRESSION

REACTIONS (6)
  - Depression [Unknown]
  - Upper limb fracture [Unknown]
  - Anxiety [Unknown]
  - Product use in unapproved indication [Unknown]
  - Off label use [Unknown]
  - Fall [Unknown]

NARRATIVE: CASE EVENT DATE: 201906
